FAERS Safety Report 8117327-2 (Version None)
Quarter: 2012Q1

REPORT INFORMATION
  Report Type: 
  Country: None (occurrence: None)
  Receive Date: 20120206
  Receipt Date: 20120126
  Transmission Date: 20120608
  Serious: Yes (Other)
  Sender: FDA-Public Use
  Company Number: GB-ASTRAZENECA-2011SE75245

PATIENT
  Age: 21 Year
  Sex: Male

DRUGS (7)
  1. CEFTAZIDIME [Concomitant]
     Dates: start: 20111101
  2. GENTAMICIN [Concomitant]
     Dates: start: 20111101
  3. MEROPENEM [Suspect]
     Indication: MOOD SWINGS
     Route: 042
  4. MEROPENEM [Suspect]
     Route: 042
     Dates: start: 20110101
  5. MEROPENEM [Suspect]
     Route: 042
     Dates: start: 20110901
  6. CEFTAZIDIME [Concomitant]
     Indication: MOOD SWINGS
  7. GENTAMICIN [Concomitant]
     Indication: MOOD SWINGS

REACTIONS (4)
  - AMNESIA [None]
  - MOOD SWINGS [None]
  - FEELING ABNORMAL [None]
  - PSYCHOTIC BEHAVIOUR [None]
